FAERS Safety Report 12100142 (Version 1)
Quarter: 2016Q1

REPORT INFORMATION
  Report Type: Spontaneous
  Country: US (occurrence: None)
  Receive Date: 20160219
  Receipt Date: 20160219
  Transmission Date: 20160526
  Serious: No
  Sender: FDA-Public Use
  Company Number: None

PATIENT
  Age: 52 Year
  Sex: Male

DRUGS (1)
  1. SUTENT [Suspect]
     Active Substance: SUNITINIB MALATE
     Indication: RENAL CELL CARCINOMA
     Dosage: 50MG CAP  QD X14D THEN 7DOFF PO
     Route: 048
     Dates: start: 20150428, end: 2016

REACTIONS (2)
  - Malignant neoplasm progression [None]
  - Drug ineffective [None]
